FAERS Safety Report 12279939 (Version 7)
Quarter: 2016Q4

REPORT INFORMATION
  Report Type: Spontaneous
  Country: JP (occurrence: JP)
  Receive Date: 20160418
  Receipt Date: 20161104
  Transmission Date: 20170207
  Serious: Yes (Hospitalization, Other)
  Sender: FDA-Public Use
  Company Number: JP-TAKEDA-2016MPI003020

PATIENT
  Age: 70 Year
  Sex: Female
  Weight: 52.2 kg

DRUGS (61)
  1. AMLODIPINE [Concomitant]
     Active Substance: AMLODIPINE BESYLATE
     Dosage: 10 MG, QD
     Route: 048
     Dates: start: 20160412, end: 20160515
  2. GASTER [Concomitant]
     Active Substance: FAMOTIDINE
     Indication: GASTRITIS
     Dosage: 20 MG, QD
     Route: 048
     Dates: end: 20160409
  3. TERPERAN [Concomitant]
     Active Substance: METOCLOPRAMIDE HYDROCHLORIDE
     Indication: VOMITING
     Dosage: 5 MG, TID
     Route: 048
     Dates: start: 20160329, end: 20160402
  4. ZOMETA [Concomitant]
     Active Substance: ZOLEDRONIC ACID
     Indication: PLASMA CELL MYELOMA
     Dosage: 3.3 MG, MONTHLY
     Route: 042
     Dates: start: 20160405, end: 20160405
  5. ANETOCAINE [Concomitant]
     Indication: ENDOSCOPY UPPER GASTROINTESTINAL TRACT
     Dosage: 30 ML, UNK
     Route: 050
     Dates: start: 20160316, end: 20160316
  6. ANETOCAINE [Concomitant]
     Dosage: 30 ML, UNK
     Route: 050
     Dates: start: 20160316, end: 20160316
  7. ANETOCAINE [Concomitant]
     Dosage: UNK
  8. PREDNISOLONE. [Suspect]
     Active Substance: PREDNISOLONE
     Indication: PLASMA CELL MYELOMA
     Dosage: 90 MG, QD
     Route: 048
     Dates: start: 20160328, end: 20160331
  9. DIQUAS [Concomitant]
     Active Substance: DIQUAFOSOL TETRASODIUM
     Indication: DRY EYE
     Dosage: UNK
     Route: 047
  10. METHYCOBAL [Concomitant]
     Active Substance: METHYLCOBALAMIN
     Indication: VITAMIN B12 DECREASED
     Dosage: 0.5 MG, UNK
     Route: 042
     Dates: start: 20160405, end: 20160405
  11. LIDOCAINE HYDROCHLORIDE. [Concomitant]
     Active Substance: LIDOCAINE HYDROCHLORIDE
     Indication: BIOPSY BONE MARROW
  12. PRONASE MS [Concomitant]
     Indication: ENDOSCOPY UPPER GASTROINTESTINAL TRACT
     Dosage: UNK
     Route: 048
     Dates: start: 20160316, end: 20160316
  13. SODIUM BICARBONATE. [Concomitant]
     Active Substance: SODIUM BICARBONATE
     Indication: ENDOSCOPY UPPER GASTROINTESTINAL TRACT
     Dosage: 1 MG, UNK
     Route: 048
     Dates: start: 20160316, end: 20160316
  14. DIMETHICONE. [Concomitant]
     Active Substance: DIMETHICONE
     Indication: COLONOSCOPY
     Dosage: 3 ML, UNK
     Route: 048
     Dates: start: 20160316, end: 20160316
  15. BFLUID [Concomitant]
     Active Substance: AMINO ACIDS\DEXTROSE\ELECTROLYTES NOS\VITAMINS
     Indication: DEHYDRATION
     Dosage: 500 ML, TID
     Route: 042
     Dates: start: 20160411, end: 20160418
  16. SAXIZON [Concomitant]
     Active Substance: HYDROCORTISONE SODIUM SUCCINATE
     Indication: THROMBOSIS
     Dosage: 100 MG, UNK
     Route: 042
     Dates: start: 20160415, end: 20160417
  17. FAMOTIDINE. [Concomitant]
     Active Substance: FAMOTIDINE
     Indication: GASTRITIS
     Dosage: 20 MG, QD
     Route: 048
     Dates: start: 20160412
  18. CALCIUM LACTATE [Concomitant]
     Active Substance: CALCIUM LACTATE
     Indication: HYPOCALCAEMIA
     Dosage: 1 G, TID
     Route: 048
     Dates: start: 20160413, end: 20160515
  19. LAC-B [Concomitant]
     Active Substance: BIFIDOBACTERIUM SPP.
     Indication: GASTRITIS
     Dosage: 1 G, TID
     Route: 048
     Dates: start: 20160414
  20. MELPHALAN [Suspect]
     Active Substance: MELPHALAN
     Indication: PLASMA CELL MYELOMA
     Dosage: 14 MG, QD
     Route: 048
     Dates: start: 20160328, end: 20160331
  21. DEPAS [Concomitant]
     Active Substance: ETIZOLAM
     Indication: ANXIETY
     Dosage: 0.5 MG, UNK
     Route: 048
     Dates: end: 20160317
  22. CALONAL [Concomitant]
     Active Substance: ACETAMINOPHEN
     Indication: PLASMA CELL MYELOMA
     Dosage: 400 MG, UNK
     Route: 048
     Dates: start: 20160322, end: 20160412
  23. ANETOCAINE [Concomitant]
     Dosage: 10 ML, UNK
     Route: 050
     Dates: start: 20160316, end: 20160316
  24. ANETOCAINE [Concomitant]
     Dosage: 10 ML, UNK
     Route: 050
     Dates: start: 20160316, end: 20160316
  25. POLARAMINE [Concomitant]
     Active Substance: DEXCHLORPHENIRAMINE MALEATE
     Dosage: 5 MG, QD
     Route: 042
     Dates: start: 20160419, end: 20160419
  26. LOXONIN [Concomitant]
     Active Substance: LOXOPROFEN SODIUM
     Indication: PLASMA CELL MYELOMA
     Dosage: UNK, QD
     Route: 048
     Dates: start: 20160322
  27. BAKTAR [Concomitant]
     Active Substance: SULFAMETHOXAZOLE\TRIMETHOPRIM
     Indication: PNEUMOCYSTIS JIROVECII PNEUMONIA
     Dosage: UNK, Q4WEEKS
     Route: 048
     Dates: start: 20160328, end: 20160409
  28. GLYCERIN                           /00200601/ [Concomitant]
     Active Substance: GLYCERIN
     Indication: COLONOSCOPY
     Dosage: 120 ML, UNK
     Route: 054
     Dates: start: 20160316, end: 20160316
  29. DIMETHICONE. [Concomitant]
     Active Substance: DIMETHICONE
     Dosage: 5 ML, UNK
     Route: 048
     Dates: start: 20160323, end: 20160323
  30. POLARAMINE [Concomitant]
     Active Substance: DEXCHLORPHENIRAMINE MALEATE
     Indication: THROMBOSIS
     Dosage: 100 MG, QD
     Route: 042
     Dates: start: 20160415, end: 20160417
  31. ZOLPIDEM TARTRATE. [Concomitant]
     Active Substance: ZOLPIDEM TARTRATE
     Indication: INSOMNIA
     Dosage: 5 MG, QD
     Route: 048
     Dates: start: 20160411, end: 20160515
  32. ANETOCAINE [Concomitant]
     Dosage: 10 ML, UNK
     Route: 050
     Dates: start: 20160316, end: 20160316
  33. ANETOCAINE [Concomitant]
     Dosage: 30 ML, UNK
     Route: 050
     Dates: start: 20160323, end: 20160323
  34. ANETOCAINE [Concomitant]
     Dosage: 30 ML, UNK
     Route: 050
     Dates: start: 20160323, end: 20160323
  35. NIFLEC [Concomitant]
     Active Substance: BICARBONATE ION\POLYETHYLENE GLYCOLS\POTASSIUM CATION\SODIUM CHLORIDE\SODIUM SULFATE ANHYDROUS
     Indication: COLONOSCOPY
     Dosage: UNK
     Route: 048
     Dates: start: 20160323, end: 20160323
  36. IRBESARTAN. [Concomitant]
     Active Substance: IRBESARTAN
     Dosage: 100 MG, QD
     Route: 048
     Dates: start: 20160412, end: 20160515
  37. VELCADE [Suspect]
     Active Substance: BORTEZOMIB
     Indication: PLASMA CELL MYELOMA
     Dosage: 2 MG, 2/WEEK
     Route: 058
     Dates: start: 20160328, end: 20160407
  38. AMLODIPINE [Concomitant]
     Active Substance: AMLODIPINE BESYLATE
     Indication: HYPERTENSION
     Dosage: 10 MG, QD
     Route: 048
     Dates: end: 20160409
  39. ACICLOVIR [Concomitant]
     Active Substance: ACYCLOVIR
     Dosage: 200 MG, QD
     Route: 048
     Dates: start: 20160412
  40. LIDOCAINE HYDROCHLORIDE. [Concomitant]
     Active Substance: LIDOCAINE HYDROCHLORIDE
     Indication: ENDOSCOPY UPPER GASTROINTESTINAL TRACT
     Dosage: UNK
     Route: 061
     Dates: start: 20160310, end: 20160310
  41. ANETOCAINE [Concomitant]
     Indication: COLONOSCOPY
     Dosage: 10 ML, UNK
     Route: 050
     Dates: start: 20160316, end: 20160316
  42. SENNOSIDE                          /00571902/ [Concomitant]
     Active Substance: SENNOSIDES A AND B
     Indication: COLONOSCOPY
     Dosage: 24 MG, UNK
     Route: 048
     Dates: start: 20160322, end: 20160322
  43. DIMETHICONE. [Concomitant]
     Active Substance: DIMETHICONE
     Indication: ENDOSCOPY UPPER GASTROINTESTINAL TRACT
     Dosage: 3 ML, UNK
     Route: 048
     Dates: start: 20160316, end: 20160316
  44. HEPAFLUSH [Concomitant]
     Active Substance: HEPARIN SODIUM
     Indication: THROMBOSIS
     Dosage: 10 ML, UNK
     Route: 042
     Dates: start: 20160309, end: 20160409
  45. CALCICOL [Concomitant]
     Active Substance: CALCIUM GLUCONATE
     Indication: HYPOCALCAEMIA
     Dosage: 5 ML, UNK
     Route: 042
     Dates: start: 20160311, end: 20160411
  46. BFLUID [Concomitant]
     Active Substance: AMINO ACIDS\DEXTROSE\ELECTROLYTES NOS\VITAMINS
     Dosage: 500 ML, BID
     Route: 042
     Dates: start: 20160502, end: 20160502
  47. XYLOCAINE [Concomitant]
     Active Substance: LIDOCAINE HYDROCHLORIDE
     Indication: ENDOSCOPY UPPER GASTROINTESTINAL TRACT
     Dosage: 0.5 MG, UNK
     Route: 048
     Dates: start: 20160411, end: 20160411
  48. SAXIZON [Concomitant]
     Active Substance: HYDROCORTISONE SODIUM SUCCINATE
     Dosage: 100 MG, QD
     Route: 042
     Dates: start: 20160419, end: 20160419
  49. CRAVIT [Concomitant]
     Active Substance: LEVOFLOXACIN
     Indication: FEBRILE NEUTROPENIA
     Dosage: 500 MG, QD
     Route: 048
     Dates: start: 20160419, end: 20160425
  50. ETIZOLAM [Concomitant]
     Active Substance: ETIZOLAM
     Indication: ANXIETY
     Dosage: 0.5 MG, UNK
     Route: 048
     Dates: start: 20160328
  51. MAGMITT [Concomitant]
     Active Substance: MAGNESIUM OXIDE
     Indication: CONSTIPATION
     Dosage: 500 MG, TID
     Route: 048
     Dates: start: 20160329, end: 20160404
  52. MIDAZOLAM [Concomitant]
     Active Substance: MIDAZOLAM\MIDAZOLAM HYDROCHLORIDE
     Indication: COLONOSCOPY
     Dosage: 3.3 MG, UNK
     Route: 042
     Dates: start: 20160316, end: 20160316
  53. MIDAZOLAM [Concomitant]
     Active Substance: MIDAZOLAM\MIDAZOLAM HYDROCHLORIDE
     Indication: ENDOSCOPY UPPER GASTROINTESTINAL TRACT
     Dosage: 2 MG, UNK
     Route: 042
     Dates: start: 20160323, end: 20160323
  54. ANETOCAINE [Concomitant]
     Dosage: 30 ML, UNK
     Route: 050
     Dates: start: 20160323, end: 20160323
  55. ANETOCAINE [Concomitant]
     Dosage: 30 ML, UNK
     Route: 050
     Dates: start: 20160411, end: 20160411
  56. ANETOCAINE [Concomitant]
     Dosage: 30 ML, UNK
     Route: 050
     Dates: start: 20160411, end: 20160411
  57. BAKTAR [Concomitant]
     Active Substance: SULFAMETHOXAZOLE\TRIMETHOPRIM
     Dosage: UNK, Q4WEEKS
     Route: 048
     Dates: start: 20160411
  58. ACICLOVIR [Concomitant]
     Active Substance: ACYCLOVIR
     Indication: HERPES ZOSTER
     Dosage: 200 MG, QD
     Route: 048
     Dates: start: 20160328, end: 20160409
  59. LIDOCAINE HYDROCHLORIDE. [Concomitant]
     Active Substance: LIDOCAINE HYDROCHLORIDE
     Indication: ASPIRATION BONE MARROW
     Dosage: 5 ML, UNK
     Route: 061
     Dates: start: 20160316, end: 20160316
  60. DIMETHICONE. [Concomitant]
     Active Substance: DIMETHICONE
     Dosage: 5 ML, UNK
     Route: 048
     Dates: start: 20160323, end: 20160323
  61. IRBESARTAN. [Concomitant]
     Active Substance: IRBESARTAN
     Indication: HYPERTENSION
     Dosage: 100 MG, QD
     Route: 048
     Dates: end: 20160409

REACTIONS (10)
  - Febrile neutropenia [Unknown]
  - Injection site erythema [Not Recovered/Not Resolved]
  - Neutrophil count decreased [Not Recovered/Not Resolved]
  - Diarrhoea [Unknown]
  - Spinal compression fracture [Not Recovered/Not Resolved]
  - White blood cell count decreased [Not Recovered/Not Resolved]
  - Aspartate aminotransferase increased [Unknown]
  - Oesophageal rupture [Recovered/Resolved]
  - Alanine aminotransferase increased [Unknown]
  - Rash [Unknown]

NARRATIVE: CASE EVENT DATE: 20160329
